FAERS Safety Report 4344087-3 (Version None)
Quarter: 2004Q2

REPORT INFORMATION
  Report Type: 
  Country: None (occurrence: None)
  Receive Date: 20040422
  Receipt Date: 20040413
  Transmission Date: 20050107
  Serious: Yes (Hospitalization, Disabling, Other)
  Sender: FDA-Public Use
  Company Number: GB-GLAXOSMITHKLINE-B0329820A

PATIENT
  Age: 22 Year
  Sex: Female
  Weight: 62 kg

DRUGS (11)
  1. ONDANSETRON HCL [Suspect]
     Dosage: 4MG PER DAY
     Route: 040
     Dates: start: 20040405
  2. CITALOPRAM [Suspect]
     Indication: DEPRESSION
     Route: 048
  3. OXYCODONE [Suspect]
     Indication: ANALGESIC EFFECT
     Dosage: 5MG PER DAY
     Route: 065
     Dates: start: 20040405
  4. PROPOFOL [Suspect]
     Indication: INDUCTION OF ANAESTHESIA
     Dosage: 150MG PER DAY
     Route: 040
     Dates: start: 20040405
  5. FENTANYL [Suspect]
     Indication: ANALGESIC EFFECT
     Dosage: 100MCG PER DAY
     Route: 040
     Dates: start: 20040405
  6. DEXAMETHASONE [Suspect]
     Indication: OEDEMA
     Dosage: 10MG PER DAY
     Route: 040
     Dates: start: 20040405
  7. KETOROLAC [Concomitant]
     Indication: ANALGESIC EFFECT
     Dosage: 30MG PER DAY
     Route: 065
     Dates: start: 20040405
  8. ATRACURIUM BESYLATE [Concomitant]
     Indication: HYPOTONIA
     Dosage: 10MG PER DAY
     Route: 065
     Dates: start: 20040405
  9. ISOFLURANE [Concomitant]
     Indication: MAINTENANCE OF ANAESTHESIA
     Route: 065
     Dates: start: 20040405
  10. NITROUS OXIDE [Concomitant]
     Indication: MAINTENANCE OF ANAESTHESIA
     Route: 065
  11. CO-PROXAMOL [Concomitant]
     Route: 065

REACTIONS (3)
  - DELAYED RECOVERY FROM ANAESTHESIA [None]
  - DEPRESSED LEVEL OF CONSCIOUSNESS [None]
  - DRUG INTERACTION [None]
